FAERS Safety Report 24991131 (Version 1)
Quarter: 2025Q1

REPORT INFORMATION
  Report Type: Spontaneous
  Country: DE (occurrence: DE)
  Receive Date: 20250220
  Receipt Date: 20250220
  Transmission Date: 20250408
  Serious: Yes (Hospitalization, Other)
  Sender: FERRING
  Company Number: DE-FERRINGPH-9800210SE

PATIENT

DRUGS (5)
  1. MINIRIN [Suspect]
     Active Substance: DESMOPRESSIN ACETATE
     Indication: Diabetes insipidus
     Dosage: 0.5 UG, DAILY
     Route: 045
     Dates: start: 19980526, end: 19980615
  2. VITAMINS [Concomitant]
     Active Substance: VITAMINS
     Indication: Malnutrition
     Route: 042
  3. Bepanthen [Concomitant]
     Indication: Skin disorder
     Route: 065
  4. MAGNESIUM ASPARTATE\POTASSIUM ASPARTATE [Concomitant]
     Active Substance: MAGNESIUM ASPARTATE\POTASSIUM ASPARTATE
     Indication: Electrolyte imbalance
     Route: 042
  5. HEPARIN [Concomitant]
     Active Substance: HEPARIN SODIUM
     Indication: Thrombosis prophylaxis
     Route: 065

REACTIONS (4)
  - Flushing [Recovered/Resolved]
  - Cold sweat [Recovered/Resolved]
  - Bronchospasm [Recovered/Resolved]
  - Product preparation issue [Recovered/Resolved]

NARRATIVE: CASE EVENT DATE: 19980526
